FAERS Safety Report 6243470-9 (Version None)
Quarter: 2009Q2

REPORT INFORMATION
  Report Type: 
  Country: None (occurrence: None)
  Receive Date: 20090624
  Receipt Date: 20090615
  Transmission Date: 20091009
  Serious: Yes (Other)
  Sender: FDA-Public Use
  Company Number: US-AVENTIS-200913807US

PATIENT
  Sex: Female
  Weight: 76.7 kg

DRUGS (25)
  1. LANTUS [Suspect]
     Route: 058
     Dates: start: 20020401
  2. HUMALOG [Concomitant]
     Dosage: DOSE: 2-10 DEPENDING ON SUGAR LEVELS
  3. METFORMIN [Concomitant]
     Dosage: DOSE QUANTITY: 1000
  4. MECLIZINE HCL [Concomitant]
  5. LISINOPRIL [Concomitant]
     Dosage: DOSE QUANTITY: 2.5
  6. TYLENOL W/ CODEINE NO. 3 [Concomitant]
  7. ASCORBIC ACID [Concomitant]
     Dosage: DOSE: UNK
  8. VIT D [Concomitant]
     Dosage: DOSE: UNK
  9. MINOCYCLINE HCL [Concomitant]
  10. COLACE [Concomitant]
     Dosage: DOSE: UNK
  11. PREVACID [Concomitant]
  12. CLINDAMYCIN PHOSPHATE [Concomitant]
     Dosage: DOSE: UNK
  13. FINACEA [Concomitant]
     Dosage: DOSE: UNK
  14. NEURONTIN [Concomitant]
  15. NEURONTIN [Concomitant]
  16. LUTEIN [Concomitant]
  17. ZYRTEC [Concomitant]
  18. ASPIRIN [Concomitant]
     Dosage: DOSE QUANTITY: 1
  19. GLYCOLAX [Concomitant]
     Dosage: DOSE: 17GM
     Dates: end: 20080101
  20. XALATAN [Concomitant]
     Dosage: DOSE: UNK
  21. ZOCOR [Concomitant]
  22. CELEBREX [Concomitant]
     Dosage: DOSE: UNK
     Dates: start: 20090403
  23. TRAZODONE HCL [Concomitant]
     Dates: start: 20090319, end: 20090430
  24. MULTI-VITAMINS [Concomitant]
     Dosage: DOSE: UNK
  25. MELATONIN [Concomitant]
     Dosage: DOSE: 300 MCG

REACTIONS (5)
  - CATARACT [None]
  - GLAUCOMA [None]
  - OEDEMA PERIPHERAL [None]
  - PAIN IN EXTREMITY [None]
  - THROMBOSIS [None]
